FAERS Safety Report 8236744-3 (Version None)
Quarter: 2012Q1

REPORT INFORMATION
  Report Type: 
  Country: None (occurrence: None)
  Receive Date: 20120326
  Receipt Date: 20120326
  Transmission Date: 20120608
  Serious: No
  Sender: FDA-Public Use
  Company Number: None

PATIENT
  Sex: Female

DRUGS (1)
  1. TIMOLOL MALEATE [Suspect]
     Indication: OPEN ANGLE GLAUCOMA
     Dosage: 1 GTT OU QHS EYE DROP
     Dates: start: 20100910, end: 20101210

REACTIONS (3)
  - PRODUCT SUBSTITUTION ISSUE [None]
  - EYELID DISORDER [None]
  - ABNORMAL SENSATION IN EYE [None]
